FAERS Safety Report 9556883 (Version 1)
Quarter: 2013Q3

REPORT INFORMATION
  Report Type: Spontaneous
  Country: JP (occurrence: JP)
  Receive Date: 20130926
  Receipt Date: 20130926
  Transmission Date: 20140515
  Serious: Yes (Other)
  Sender: FDA-Public Use
  Company Number: JP-BAYER-2013-115317

PATIENT
  Age: 49 Year
  Sex: Female
  Weight: 42 kg

DRUGS (2)
  1. STIVARGA [Suspect]
     Indication: COLON CANCER
     Dosage: 120 MG, QD
     Route: 048
     Dates: start: 20130823, end: 20130903
  2. NORVASC [Suspect]
     Indication: HYPERTENSION
     Dosage: 2.5 MG, QD
     Route: 048
     Dates: start: 20130823, end: 20130903

REACTIONS (1)
  - Drug reaction with eosinophilia and systemic symptoms [Recovering/Resolving]
